FAERS Safety Report 13762838 (Version 1)
Quarter: 2017Q3

REPORT INFORMATION
  Report Type: Spontaneous
  Country: JP (occurrence: JP)
  Receive Date: 20170718
  Receipt Date: 20170718
  Transmission Date: 20171127
  Serious: Yes (Hospitalization, Other)
  Sender: FDA-Public Use
  Company Number: JP-BAYER-2017-130482

PATIENT
  Age: 68 Year
  Sex: Female

DRUGS (1)
  1. NEXAVAR [Suspect]
     Active Substance: SORAFENIB
     Indication: HEPATOCELLULAR CARCINOMA
     Route: 048

REACTIONS (15)
  - Pneumocystis jirovecii pneumonia [None]
  - Feeling cold [Recovering/Resolving]
  - Paralysis [None]
  - Metastases to central nervous system [None]
  - Bone cancer metastatic [Recovering/Resolving]
  - Hepatocellular carcinoma [None]
  - Spinal cord compression [None]
  - Nerve degeneration [None]
  - Vomiting [None]
  - Metastases to stomach [None]
  - Nausea [None]
  - Hypoaesthesia [Recovering/Resolving]
  - Metastases to lung [None]
  - General physical health deterioration [None]
  - Anaemia [None]
